FAERS Safety Report 9750902 (Version 1)
Quarter: 2013Q4

REPORT INFORMATION
  Report Type: Spontaneous
  Country: US (occurrence: US)
  Receive Date: 20131212
  Receipt Date: 20131212
  Transmission Date: 20140711
  Serious: No
  Sender: FDA-Public Use
  Company Number: US-TEVA-402391USA

PATIENT
  Age: 35 Year
  Sex: Female
  Weight: 62.2 kg

DRUGS (8)
  1. PARAGARD 380A [Suspect]
     Indication: CONTRACEPTION
     Route: 015
     Dates: start: 201208
  2. AVONEX [Concomitant]
     Indication: MULTIPLE SCLEROSIS
  3. ALEVE [Concomitant]
  4. VITAMIN B COMPLEX [Concomitant]
  5. BIOTIN [Concomitant]
  6. ALPHA LIPOEIC ACID [Concomitant]
  7. MSM [Concomitant]
  8. MILK THISTLE [Concomitant]

REACTIONS (2)
  - Abdominal pain [Not Recovered/Not Resolved]
  - Device expulsion [Not Recovered/Not Resolved]
